FAERS Safety Report 9251887 (Version 5)
Quarter: 2014Q3

REPORT INFORMATION
  Report Type: Spontaneous
  Country: US (occurrence: US)
  Receive Date: 20130424
  Receipt Date: 20140704
  Transmission Date: 20150326
  Serious: Yes (Hospitalization, Other)
  Sender: FDA-Public Use
  Company Number: US-ASTRAZENECA-2013SE27195

PATIENT
  Age: 69 Year
  Sex: Female
  Weight: 85.7 kg

DRUGS (24)
  1. NEXIUM [Suspect]
     Active Substance: ESOMEPRAZOLE MAGNESIUM
     Route: 048
     Dates: start: 201104
  2. ZOLOFT [Concomitant]
     Active Substance: SERTRALINE HYDROCHLORIDE
  3. HYDROCODONE [Concomitant]
     Active Substance: HYDROCODONE
     Dosage: 5/325 MG
  4. NOVOLOG [Concomitant]
     Active Substance: INSULIN ASPART
     Dosage: 55
  5. COREG [Concomitant]
     Active Substance: CARVEDILOL
     Dosage: 3.125 MG 1/2 TABLET TWICE A DAY
  6. BACLOFEN. [Concomitant]
     Active Substance: BACLOFEN
  7. NEURONTIN [Concomitant]
     Active Substance: GABAPENTIN
  8. CRESTOR [Concomitant]
     Active Substance: ROSUVASTATIN CALCIUM
     Route: 048
     Dates: start: 20080922
  9. IMDUR [Concomitant]
     Active Substance: ISOSORBIDE MONONITRATE
  10. PROTONIX [Concomitant]
     Active Substance: PANTOPRAZOLE SODIUM
  11. AVANDIA [Concomitant]
     Active Substance: ROSIGLITAZONE MALEATE
     Dates: start: 20050628
  12. LANTUS [Concomitant]
     Active Substance: INSULIN GLARGINE
     Dosage: 16 UNITS TWO TIMES A DAY
  13. LISINOPRIL. [Concomitant]
     Active Substance: LISINOPRIL
  14. ALDACTONE [Concomitant]
     Active Substance: SPIRONOLACTONE
  15. FLEXERIL [Concomitant]
     Active Substance: CYCLOBENZAPRINE HYDROCHLORIDE
     Route: 048
     Dates: start: 20080529
  16. GLIPIZIDE. [Concomitant]
     Active Substance: GLIPIZIDE
     Dates: start: 20050628
  17. NEXIUM [Suspect]
     Active Substance: ESOMEPRAZOLE MAGNESIUM
     Route: 048
  18. ASPIRIN. [Concomitant]
     Active Substance: ASPIRIN
  19. PRAVASTATIN [Concomitant]
     Active Substance: PRAVASTATIN\PRAVASTATIN SODIUM
  20. NEXIUM [Suspect]
     Active Substance: ESOMEPRAZOLE MAGNESIUM
     Route: 048
     Dates: start: 200701
  21. NEXIUM [Suspect]
     Active Substance: ESOMEPRAZOLE MAGNESIUM
     Route: 048
     Dates: start: 20071127
  22. NEXIUM [Suspect]
     Active Substance: ESOMEPRAZOLE MAGNESIUM
     Route: 048
     Dates: start: 20070104, end: 20070404
  23. PLAVIX [Concomitant]
     Active Substance: CLOPIDOGREL BISULFATE
  24. METFORMIN [Concomitant]
     Active Substance: METFORMIN HYDROCHLORIDE
     Dates: start: 20050628

REACTIONS (26)
  - Spinal compression fracture [Unknown]
  - Lower limb fracture [Unknown]
  - Rib fracture [Unknown]
  - Ankle fracture [Unknown]
  - Intervertebral disc protrusion [Unknown]
  - Femur fracture [Unknown]
  - Cerebrovascular accident [Unknown]
  - Angina unstable [Unknown]
  - Chronic obstructive pulmonary disease [Unknown]
  - Activities of daily living impaired [Unknown]
  - Fall [Unknown]
  - Patella fracture [Unknown]
  - Spinal osteoarthritis [Unknown]
  - Osteopenia [Unknown]
  - Multiple fractures [Unknown]
  - Arthritis [Unknown]
  - Intervertebral disc degeneration [Unknown]
  - Depression [Unknown]
  - Hip fracture [Unknown]
  - Pelvic fracture [Unknown]
  - Bone disorder [Unknown]
  - Calcium deficiency [Unknown]
  - Osteoarthritis [Unknown]
  - Spinal disorder [Unknown]
  - Osteoporosis [Unknown]
  - Ligament sprain [Unknown]

NARRATIVE: CASE EVENT DATE: 2008
